FAERS Safety Report 4622660-2 (Version None)
Quarter: 2005Q1

REPORT INFORMATION
  Report Type: 
  Country: None (occurrence: None)
  Receive Date: 20050330
  Receipt Date: 20041013
  Transmission Date: 20050727
  Serious: No
  Sender: FDA-Public Use
  Company Number: US-BRISTOL-MYERS SQUIBB COMPANY-12732749

PATIENT
  Age: 46 Year
  Sex: Male

DRUGS (5)
  1. REYATAZ [Suspect]
     Indication: HIV INFECTION
     Dosage: THERAPY INTERRUPTED ON 08-OCT-2004, RESTARTED 11-NOV-2004
     Route: 048
     Dates: start: 20040819, end: 20041201
  2. RITONAVIR [Suspect]
     Indication: HIV INFECTION
     Dosage: THERAPY INTERRUPTED 08-OCT-2004, RESTARTED 11-NOV-2004
     Route: 048
     Dates: start: 20040819, end: 20041201
  3. VIREAD [Concomitant]
  4. EMTRIVA [Concomitant]
  5. DAPSONE [Concomitant]

REACTIONS (6)
  - ABDOMINAL PAIN [None]
  - CHEST PAIN [None]
  - DIARRHOEA [None]
  - DYSPNOEA [None]
  - JAUNDICE [None]
  - LIPIDS ABNORMAL [None]
